FAERS Safety Report 17556459 (Version 1)
Quarter: 2020Q1

REPORT INFORMATION
  Report Type: Spontaneous
  Country: US (occurrence: US)
  Receive Date: 20200310
  Receipt Date: 20200310
  Transmission Date: 20200409
  Serious: No
  Sender: FDA-Public Use
  Company Number: None

PATIENT
  Age: 73 Year
  Sex: Male

DRUGS (1)
  1. REVLIMID [Suspect]
     Active Substance: LENALIDOMIDE
     Indication: PLASMA CELL MYELOMA
     Route: 048
     Dates: start: 20161101, end: 20171205

REACTIONS (4)
  - Diarrhoea [None]
  - Neuropathy peripheral [None]
  - Therapy cessation [None]
  - Abdominal pain upper [None]

NARRATIVE: CASE EVENT DATE: 20171205
